FAERS Safety Report 10222070 (Version 2)
Quarter: 2014Q2

REPORT INFORMATION
  Report Type: Report from Study
  Country: GB (occurrence: GB)
  Receive Date: 20140606
  Receipt Date: 20140606
  Transmission Date: 20141212
  Serious: No
  Sender: FDA-Public Use
  Company Number: GB-BIOMARINP-003265

PATIENT
  Age: 9 Year
  Sex: Female

DRUGS (2)
  1. NAGLAZYME [Suspect]
     Indication: MUCOPOLYSACCHARIDOSIS VI
     Dosage: 1MG/KG,QW
     Route: 041
     Dates: start: 20060816
  2. NAGLAZYME [Suspect]
     Dosage: 20 MG, UNK
     Route: 041
     Dates: start: 20110519

REACTIONS (1)
  - Upper respiratory tract infection [Recovered/Resolved]
